FAERS Safety Report 19787163 (Version 3)
Quarter: 2021Q4

REPORT INFORMATION
  Report Type: Report from Study
  Country: US (occurrence: US)
  Receive Date: 20210903
  Receipt Date: 20211101
  Transmission Date: 20220303
  Serious: Yes (Other)
  Sender: FDA-Public Use
  Company Number: US-INCYTE CORPORATION-2021IN007855

PATIENT

DRUGS (1)
  1. JAKAFI [Suspect]
     Active Substance: RUXOLITINIB
     Indication: Polycythaemia vera
     Dosage: 20 MILLIGRAM, QD
     Route: 048
     Dates: start: 20200616

REACTIONS (13)
  - Neuropathy peripheral [Recovering/Resolving]
  - Spinal cord disorder [Unknown]
  - Insomnia [Recovering/Resolving]
  - Gait disturbance [Recovering/Resolving]
  - Hypoaesthesia [Recovering/Resolving]
  - Paraesthesia [Recovering/Resolving]
  - Electric shock sensation [Recovering/Resolving]
  - Muscular weakness [Unknown]
  - Pain [Unknown]
  - Erythema [Not Recovered/Not Resolved]
  - Joint swelling [Not Recovered/Not Resolved]
  - Peripheral swelling [Not Recovered/Not Resolved]
  - Balance disorder [Recovering/Resolving]

NARRATIVE: CASE EVENT DATE: 20210701
